FAERS Safety Report 6178267-1 (Version None)
Quarter: 2009Q2

REPORT INFORMATION
  Report Type: 
  Country: None (occurrence: None)
  Receive Date: 20090504
  Receipt Date: 20090424
  Transmission Date: 20091009
  Serious: Yes (Other)
  Sender: FDA-Public Use
  Company Number: A0781637A

PATIENT
  Age: 32 Year
  Sex: Male

DRUGS (2)
  1. ZYBAN [Suspect]
     Indication: DRUG USE FOR UNKNOWN INDICATION
     Dosage: 750MG SINGLE DOSE
     Route: 048
     Dates: start: 20090424
  2. UNKNOWN [Concomitant]

REACTIONS (1)
  - INTENTIONAL OVERDOSE [None]
